FAERS Safety Report 23121938 (Version 2)
Quarter: 2023Q4

REPORT INFORMATION
  Report Type: Spontaneous
  Country: JP (occurrence: JP)
  Receive Date: 20231030
  Receipt Date: 20231228
  Transmission Date: 20240110
  Serious: Yes (Hospitalization)
  Sender: FDA-Public Use
  Company Number: JP-SA-2023SA324993

PATIENT
  Age: 48 Year
  Sex: Female
  Weight: 32 kg

DRUGS (3)
  1. NEXVIAZYME [Suspect]
     Active Substance: AVALGLUCOSIDASE ALFA-NGPT
     Indication: Product used for unknown indication
     Dosage: 600 MG, QOW
     Route: 041
  2. DIENOGEST [Concomitant]
     Active Substance: DIENOGEST
     Indication: Product used for unknown indication
     Dosage: DOSE: 1 DF, BID
     Route: 048
  3. HERBALS [Concomitant]
     Active Substance: HERBALS
     Indication: Myalgia
     Dosage: UNK UNK, QOW
     Route: 048

REACTIONS (1)
  - Pleural effusion [Recovering/Resolving]

NARRATIVE: CASE EVENT DATE: 20231010
